FAERS Safety Report 4297007-4 (Version None)
Quarter: 2004Q1

REPORT INFORMATION
  Report Type: 
  Country: None (occurrence: None)
  Receive Date: 20040213
  Receipt Date: 20040203
  Transmission Date: 20041129
  Serious: Yes (Other)
  Sender: FDA-Public Use
  Company Number: GB-JNJFOC-20031006072

PATIENT
  Age: 58 Year
  Sex: Female

DRUGS (2)
  1. REMICADE [Suspect]
     Indication: RHEUMATOID ARTHRITIS
     Dosage: 3 MG/KG, 1 IN 8 WEEK, INTRAVENOUS
     Route: 042
     Dates: end: 20030619
  2. METHOTREXATE [Concomitant]

REACTIONS (2)
  - UTERINE NEOPLASM [None]
  - VAGINAL HAEMORRHAGE [None]
